FAERS Safety Report 7240649-4 (Version None)
Quarter: 2011Q1

REPORT INFORMATION
  Report Type: 
  Country: None (occurrence: None)
  Receive Date: 20110124
  Receipt Date: 20101118
  Transmission Date: 20110831
  Serious: No
  Sender: FDA-Public Use
  Company Number: US-KINGPHARMUSA00001-K201001421

PATIENT
  Sex: Female

DRUGS (1)
  1. EPIPEN [Suspect]
     Dosage: 0.3 MG, SINGLE
     Dates: start: 20101118, end: 20101118

REACTIONS (2)
  - ACCIDENTAL EXPOSURE [None]
  - INJECTION SITE INJURY [None]
